FAERS Safety Report 7367281-6 (Version None)
Quarter: 2011Q1

REPORT INFORMATION
  Report Type: 
  Country: None (occurrence: None)
  Receive Date: 20110322
  Receipt Date: 20110310
  Transmission Date: 20110831
  Serious: Yes (Hospitalization, Other)
  Sender: FDA-Public Use
  Company Number: US-MERCK-1011USA01063

PATIENT
  Age: 64 Year
  Sex: Female

DRUGS (2)
  1. TRANXENE [Concomitant]
     Route: 065
  2. PEPCID [Suspect]
     Indication: GASTROOESOPHAGEAL REFLUX DISEASE
     Route: 048

REACTIONS (5)
  - CEREBROVASCULAR ACCIDENT [None]
  - IRRITABLE BOWEL SYNDROME [None]
  - GASTROINTESTINAL HAEMORRHAGE [None]
  - BRONCHITIS [None]
  - PRODUCT ODOUR ABNORMAL [None]
